FAERS Safety Report 10444245 (Version 1)
Quarter: 2014Q3

REPORT INFORMATION
  Report Type: Spontaneous
  Country: US (occurrence: US)
  Receive Date: 20140910
  Receipt Date: 20140910
  Transmission Date: 20150326
  Serious: Yes (Hospitalization)
  Sender: FDA-Public Use
  Company Number: US-BAYER-2014-132933

PATIENT
  Age: 40 Year
  Sex: Female
  Weight: 93.42 kg

DRUGS (15)
  1. VIVELLE [ESTRADIOL] [Concomitant]
     Dosage: 0.5 MG,Q 3 DAYS
  2. OXYCODONE [Concomitant]
     Active Substance: OXYCODONE
     Dosage: 60 MG, TID
     Route: 048
  3. YASMIN [Suspect]
     Active Substance: DROSPIRENONE\ETHINYL ESTRADIOL
  4. FENTANYL. [Concomitant]
     Active Substance: FENTANYL
     Dosage: 100 MCG Q 48 HOURS
  5. PREDNISONE. [Concomitant]
     Active Substance: PREDNISONE
     Dosage: 20 MG, BID
  6. NORVASC [Concomitant]
     Active Substance: AMLODIPINE BESYLATE
     Dosage: 10 MG, BID
     Route: 048
  7. LYRICA [Concomitant]
     Active Substance: PREGABALIN
     Dosage: 225 MG IN AM;150 MG AT 5 PM
     Route: 048
  8. PROMETHAZINE [Concomitant]
     Active Substance: PROMETHAZINE\PROMETHAZINE HYDROCHLORIDE
     Dosage: 25 MG, BID,PRN
     Route: 048
  9. FLOMAX [MORNIFLUMATE] [Concomitant]
     Dosage: 0.4 MG, BID
     Route: 048
  10. RIFAMPIN. [Concomitant]
     Active Substance: RIFAMPIN
     Dosage: 100 MG, BID, THREE TABLETS
  11. YAZ [Suspect]
     Active Substance: DROSPIRENONE\ETHINYL ESTRADIOL
  12. TRIAZOLAM. [Concomitant]
     Active Substance: TRIAZOLAM
     Dosage: 1.25 MG, HS, TWO TABLET
     Route: 048
  13. CYCLOBENZAPRINE [Concomitant]
     Active Substance: CYCLOBENZAPRINE
     Dosage: 10 MG, HS, TWO TABLET
     Route: 048
  14. ZOFRAN [Concomitant]
     Active Substance: ONDANSETRON HYDROCHLORIDE
     Dosage: 4 MG, PRN
     Route: 048
  15. CONCERTA [Concomitant]
     Active Substance: METHYLPHENIDATE HYDROCHLORIDE
     Dosage: 54 MG, BID, TWO TABLET
     Route: 048

REACTIONS (2)
  - Deep vein thrombosis [None]
  - Phlebitis superficial [None]

NARRATIVE: CASE EVENT DATE: 20110424
